FAERS Safety Report 8334116-4 (Version None)
Quarter: 2012Q2

REPORT INFORMATION
  Report Type: 
  Country: None (occurrence: None)
  Receive Date: 20120503
  Receipt Date: 20120430
  Transmission Date: 20120825
  Serious: Yes (Life-Threatening, Hospitalization)
  Sender: FDA-Public Use
  Company Number: GB-ABBOTT-12P-167-0931183-00

PATIENT
  Age: 15 Year
  Sex: Female
  Weight: 43 kg

DRUGS (2)
  1. HUMIRA [Suspect]
     Indication: JUVENILE ARTHRITIS
     Route: 058
     Dates: start: 20101217, end: 20120115
  2. METHOTREXATE [Suspect]
     Indication: JUVENILE ARTHRITIS
     Route: 048
     Dates: start: 20110125

REACTIONS (3)
  - CONVULSION [None]
  - ENCEPHALITIS [None]
  - TEMPORAL LOBE EPILEPSY [None]
